FAERS Safety Report 6083813-2 (Version None)
Quarter: 2009Q1

REPORT INFORMATION
  Report Type: 
  Country: None (occurrence: None)
  Receive Date: 20090219
  Receipt Date: 20090210
  Transmission Date: 20090719
  Serious: Yes (Other)
  Sender: FDA-Public Use
  Company Number: BR-PFIZER INC-2008150765

PATIENT

DRUGS (14)
  1. VIAGRA [Suspect]
     Indication: ERECTILE DYSFUNCTION
     Dosage: 50 MG, AS NEEDED
     Route: 048
     Dates: start: 20050101
  2. ATENOLOL [Concomitant]
     Dosage: UNK
     Route: 065
  3. ACETYLSALICYLIC ACID [Concomitant]
     Dosage: UNK
     Route: 065
  4. RAMIPRIL [Concomitant]
     Dosage: UNK
     Route: 065
  5. AMLODIPINE [Concomitant]
     Dosage: UNK
     Route: 065
  6. HYDRALAZINE [Concomitant]
     Dosage: UNK
     Route: 065
  7. RIVOTRIL [Concomitant]
     Dosage: UNK
     Route: 065
  8. CAPILAREMA [Concomitant]
     Dosage: UNK
     Route: 065
  9. ALL OTHER THERAPEUTIC PRODUCTS [Concomitant]
     Dosage: UNK
     Route: 065
  10. SIMVASTATIN [Concomitant]
     Dosage: UNK
     Route: 065
  11. METFORMIN HYDROCHLORIDE [Concomitant]
     Dosage: UNK
     Route: 065
  12. DIAMICRON [Concomitant]
     Dosage: UNK
     Route: 065
  13. SUSTRATE [Concomitant]
     Dosage: UNK
     Route: 065
     Dates: start: 20030101
  14. INDOCIN [Concomitant]
     Dosage: UNK
     Route: 065

REACTIONS (1)
  - SURGERY [None]
